FAERS Safety Report 4592625-8 (Version None)
Quarter: 2005Q1

REPORT INFORMATION
  Report Type: 
  Country: None (occurrence: None)
  Receive Date: 20050228
  Receipt Date: 20050215
  Transmission Date: 20050727
  Serious: Yes (Hospitalization)
  Sender: FDA-Public Use
  Company Number: AU-JNJFOC-20050204427

PATIENT
  Age: 92 Year
  Sex: Female

DRUGS (10)
  1. TRAMADOL HCL [Suspect]
     Indication: DRUG USE FOR UNKNOWN INDICATION
     Route: 049
  2. ACETYLSALICYLIC ACID [Concomitant]
     Route: 049
  3. TERBUTALINE SULFATE [Concomitant]
     Indication: ASTHMA
     Route: 065
  4. DILTIAZEM [Concomitant]
     Route: 065
  5. PERINDOPRIL [Concomitant]
     Route: 049
  6. ISOSORBIDE MONONITRATE [Concomitant]
     Route: 049
  7. CLOPIDOGREL HYDROGEN SULFATE [Concomitant]
     Route: 049
  8. NITROGLYCERIN [Concomitant]
     Route: 049
  9. ANASTROZOLE [Concomitant]
     Route: 049
  10. ACETAMINOPHEN [Concomitant]
     Route: 049

REACTIONS (2)
  - CIRCULATORY COLLAPSE [None]
  - FALL [None]
